FAERS Safety Report 7918951-X (Version None)
Quarter: 2011Q4

REPORT INFORMATION
  Report Type: 
  Country: None (occurrence: None)
  Receive Date: 20111116
  Receipt Date: 20111103
  Transmission Date: 20120403
  Serious: Yes (Hospitalization)
  Sender: FDA-Public Use
  Company Number: PHHY2011GB098016

PATIENT
  Age: 83 Year
  Sex: Female

DRUGS (7)
  1. LANSOPRAZOLE [Concomitant]
     Dosage: 5 MG, QD
     Route: 048
     Dates: start: 20090101, end: 20110112
  2. ATENOLOL [Concomitant]
     Dosage: 50 MG, QD
     Route: 048
     Dates: start: 20060101, end: 20110112
  3. IBUPROFEN [Suspect]
     Indication: RHEUMATOID ARTHRITIS
     Dosage: 400 MG, UNK
     Route: 048
     Dates: start: 20010101, end: 20110112
  4. ACETYLSALICYLIC ACID SRT [Suspect]
     Indication: PROPHYLAXIS
     Dosage: 75 MG, QD
     Route: 048
     Dates: start: 20060101, end: 20110112
  5. BENDROFLUMETHIAZIDE [Concomitant]
     Dosage: 2.5 MG, QD
     Route: 048
     Dates: start: 20060101, end: 20110112
  6. SIMVASTATIN [Concomitant]
     Dosage: 40 MG, QD
     Route: 048
     Dates: start: 20060101, end: 20110112
  7. AMLODIPINE [Concomitant]
     Dosage: 5 MG, QD
     Route: 048
     Dates: start: 20060101, end: 20110112

REACTIONS (5)
  - FAECES DISCOLOURED [None]
  - CIRCULATORY COLLAPSE [None]
  - GASTRIC ULCER [None]
  - SYNCOPE [None]
  - BLOOD PRESSURE DECREASED [None]
